FAERS Safety Report 6573734-0 (Version None)
Quarter: 2010Q1

REPORT INFORMATION
  Report Type: 
  Country: None (occurrence: None)
  Receive Date: 20100208
  Receipt Date: 20100126
  Transmission Date: 20100710
  Serious: Yes (Hospitalization, Disabling)
  Sender: FDA-Public Use
  Company Number: B0580808A

PATIENT
  Sex: Female
  Weight: 51 kg

DRUGS (60)
  1. ARRANON [Suspect]
     Dosage: 1500MGM2 PER DAY
     Route: 042
     Dates: start: 20090605, end: 20090609
  2. CARBOPLATIN [Concomitant]
     Route: 042
     Dates: start: 20090616, end: 20090616
  3. ETOPOSIDE [Concomitant]
     Route: 042
     Dates: start: 20090616, end: 20090618
  4. MEROPEN [Concomitant]
     Route: 042
     Dates: start: 20090527, end: 20090615
  5. TEICOPLANIN [Concomitant]
     Dosage: 400MG PER DAY
     Route: 042
     Dates: start: 20090527, end: 20090615
  6. ERYTHROCIN LACTOBIONATE [Concomitant]
     Dosage: 1500MG PER DAY
     Route: 042
  7. AMIKACIN SULFATE [Concomitant]
     Dosage: 400MG PER DAY
     Route: 042
     Dates: start: 20090604, end: 20090616
  8. SOL-MELCORT [Concomitant]
     Dosage: 1000MG PER DAY
     Route: 042
     Dates: start: 20090604, end: 20090615
  9. CLINDAMYCIN [Concomitant]
     Dosage: 1200MG PER DAY
     Route: 042
     Dates: start: 20090604, end: 20090706
  10. GLYCYRON [Concomitant]
     Route: 048
     Dates: end: 20090609
  11. URSO 250 [Concomitant]
     Route: 048
  12. PREDONINE [Concomitant]
     Route: 048
     Dates: end: 20090609
  13. TAKEPRON [Concomitant]
     Route: 048
     Dates: end: 20090609
  14. CHINESE MEDICINE [Concomitant]
     Route: 048
     Dates: end: 20090609
  15. ITRIZOLE [Concomitant]
     Route: 048
  16. NASEA [Concomitant]
     Route: 048
     Dates: start: 20090607
  17. SELTOUCH [Concomitant]
     Route: 061
     Dates: start: 20090606, end: 20090606
  18. BAKTAR [Concomitant]
     Route: 048
     Dates: start: 20090608
  19. AZUNOL [Concomitant]
     Route: 061
     Dates: start: 20090611
  20. ALLOID G [Concomitant]
     Route: 065
     Dates: start: 20090611
  21. ACHROMYCIN [Concomitant]
     Route: 061
     Dates: start: 20090619, end: 20090619
  22. PANTOL [Concomitant]
     Route: 042
     Dates: end: 20090605
  23. NEOPHAGEN C [Concomitant]
     Route: 042
  24. PHYSIOLOGICAL SALINE [Concomitant]
     Route: 042
  25. ALBUMIN (HUMAN) [Concomitant]
     Route: 042
     Dates: end: 20090616
  26. FUROSEMIDE [Concomitant]
     Route: 042
  27. GRANISETRON [Concomitant]
     Route: 042
     Dates: end: 20090619
  28. MEYLON [Concomitant]
     Route: 042
     Dates: end: 20090621
  29. MANNITOL [Concomitant]
     Route: 042
     Dates: end: 20090607
  30. ATARAX [Concomitant]
     Route: 042
     Dates: end: 20090605
  31. ELASPOL [Concomitant]
     Route: 042
     Dates: start: 20090606, end: 20090623
  32. SOSEGON [Concomitant]
     Route: 042
     Dates: start: 20090606, end: 20090606
  33. PROPOFOL [Concomitant]
     Dates: start: 20090606, end: 20090606
  34. FENTANYL [Concomitant]
     Route: 042
     Dates: start: 20090606, end: 20090606
  35. GLUTATHIONE [Concomitant]
     Route: 042
     Dates: start: 20090607, end: 20090609
  36. GAMOFA [Concomitant]
     Route: 042
     Dates: start: 20090607, end: 20090609
  37. MEDLENIK [Concomitant]
     Dates: start: 20090607, end: 20090621
  38. MIDAZOLAM HCL [Concomitant]
     Route: 042
     Dates: start: 20090607, end: 20090622
  39. ADONA (AC-17) [Concomitant]
     Route: 042
     Dates: start: 20090607
  40. TRANSAMIN [Concomitant]
     Route: 042
     Dates: start: 20090607
  41. ROPION [Concomitant]
     Route: 042
     Dates: start: 20090607, end: 20090615
  42. HUMULIN R [Concomitant]
     Dates: start: 20090607, end: 20090610
  43. DIAMOX SRC [Concomitant]
     Route: 042
     Dates: start: 20090607, end: 20090618
  44. POTASSIUM CHLORIDE [Concomitant]
     Route: 042
     Dates: start: 20090608
  45. AMBISOME [Concomitant]
     Route: 042
     Dates: start: 20090608
  46. OMEPRAL [Concomitant]
     Route: 042
     Dates: start: 20090609
  47. IMMUNE GLOBULIN INTRAVENOUS (HUMAN) [Concomitant]
     Route: 042
     Dates: start: 20090609
  48. GRAN [Concomitant]
     Route: 042
     Dates: start: 20090610, end: 20090615
  49. METILON [Concomitant]
     Route: 042
     Dates: start: 20090615, end: 20090615
  50. MINOPEN [Concomitant]
     Route: 042
     Dates: start: 20090615
  51. VANCOMYCIN [Concomitant]
     Route: 042
     Dates: start: 20090615
  52. NORADRENALINE [Concomitant]
     Route: 042
     Dates: start: 20090615, end: 20090618
  53. UROMITEXAN [Concomitant]
     Route: 042
     Dates: start: 20090616, end: 20090618
  54. CALCICOL [Concomitant]
     Route: 042
     Dates: start: 20090617, end: 20090621
  55. SODIUM CHLORIDE [Concomitant]
     Route: 042
     Dates: start: 20090618
  56. NEU-UP [Concomitant]
     Route: 042
     Dates: start: 20090619
  57. BROMHEXINE [Concomitant]
     Route: 042
     Dates: start: 20090623
  58. ALEVIATIN [Concomitant]
     Route: 042
     Dates: start: 20090623
  59. HORIZON [Concomitant]
     Route: 042
     Dates: start: 20090624
  60. PHENOBARBITAL TAB [Concomitant]
     Route: 042
     Dates: start: 20090624

REACTIONS (1)
  - OSMOTIC DEMYELINATION SYNDROME [None]
